FAERS Safety Report 9757489 (Version 3)
Quarter: 2014Q2

REPORT INFORMATION
  Report Type: Spontaneous
  Country: JP (occurrence: JP)
  Receive Date: 20131215
  Receipt Date: 20140408
  Transmission Date: 20141212
  Serious: Yes (Life-Threatening)
  Sender: FDA-Public Use
  Company Number: JP-ROCHE-1318163

PATIENT
  Age: 67 Year
  Sex: Male
  Weight: 44 kg

DRUGS (5)
  1. AVASTIN [Suspect]
     Indication: RECTAL CANCER METASTATIC
     Dosage: DOSAGE IS UNCERTAIN.
     Route: 041
     Dates: start: 20130124, end: 20131126
  2. XELODA [Suspect]
     Indication: RECTAL CANCER METASTATIC
     Route: 048
     Dates: start: 20130124, end: 20131210
  3. ADOAIR [Suspect]
     Indication: PRODUCT USED FOR UNKNOWN INDICATION
     Dosage: DOSAGE IS UNCERTAIN.
     Route: 065
  4. ELPLAT [Concomitant]
     Indication: RECTAL CANCER METASTATIC
     Route: 041
     Dates: start: 20130124, end: 20130709
  5. PYDOXAL [Concomitant]
     Indication: PROPHYLAXIS
     Route: 048
     Dates: start: 20130124, end: 20130210

REACTIONS (1)
  - Diverticular perforation [Recovering/Resolving]
